FAERS Safety Report 9083819 (Version 1)
Quarter: 2013Q1

REPORT INFORMATION
  Report Type: Spontaneous
  Country: PR (occurrence: PR)
  Receive Date: 20130131
  Receipt Date: 20130131
  Transmission Date: 20140127
  Serious: No
  Sender: FDA-Public Use
  Company Number: PR-ABBOTT-12P-131-0940243-00

PATIENT
  Sex: Female

DRUGS (8)
  1. HUMIRA [Suspect]
     Indication: RHEUMATOID ARTHRITIS
     Route: 058
     Dates: start: 2010, end: 201205
  2. HUMIRA [Suspect]
     Route: 058
  3. SYNTHYROID [Concomitant]
     Indication: HYPOTHYROIDISM
     Route: 048
  4. ACCUPRIL [Concomitant]
     Indication: HYPERTENSION
     Route: 048
  5. CALAN [Concomitant]
     Indication: HYPERTENSION
     Route: 048
  6. HYDROCHLORATHIAZIDE [Concomitant]
     Indication: HYPERTENSION
     Route: 048
  7. TRILEPTAL [Concomitant]
     Indication: TRIGEMINAL NEURALGIA
     Route: 048
  8. METHOTREXATE [Concomitant]
     Indication: RHEUMATOID ARTHRITIS
     Dosage: FIVE 2.5 MG TABLETS WEEKLY
     Route: 048

REACTIONS (1)
  - Nasopharyngitis [Recovered/Resolved]
